FAERS Safety Report 9410000 (Version 1)
Quarter: 2013Q3

REPORT INFORMATION
  Report Type: Spontaneous
  Country: US (occurrence: US)
  Receive Date: 20130719
  Receipt Date: 20130719
  Transmission Date: 20140515
  Serious: No
  Sender: FDA-Public Use
  Company Number: US-009507513-1306USA012665

PATIENT
  Age: 58 Year
  Sex: Male

DRUGS (4)
  1. NASONEX [Suspect]
     Indication: GASTROOESOPHAGEAL REFLUX DISEASE
     Dosage: TWO SPRAYS IN EACH NOSTRIL, DAILY
     Route: 045
     Dates: start: 201304
  2. PRILOSEC [Concomitant]
     Route: 048
  3. ZINC (UNSPECIFIED) [Concomitant]
  4. CORTICOSTEROIDS (UNSPECIFIED) [Concomitant]

REACTIONS (4)
  - Oropharyngeal discomfort [Not Recovered/Not Resolved]
  - Product quality issue [Unknown]
  - Drug dose omission [Unknown]
  - Off label use [Unknown]
